FAERS Safety Report 9709285 (Version 1)
Quarter: 2013Q4

REPORT INFORMATION
  Report Type: Report from Study
  Country: US (occurrence: US)
  Receive Date: 20131125
  Receipt Date: 20131125
  Transmission Date: 20140711
  Serious: Yes (Hospitalization, Other)
  Sender: FDA-Public Use
  Company Number: US-ABBVIE-13P-163-1170240-00

PATIENT
  Age: 54 Year
  Sex: Female
  Weight: 74.91 kg

DRUGS (8)
  1. HUMIRA [Suspect]
     Indication: RHEUMATOID ARTHRITIS
     Dates: start: 2003, end: 2004
  2. HUMIRA [Suspect]
     Indication: RHEUMATOID ARTHRITIS
     Dates: end: 2012
  3. HUMIRA [Suspect]
     Dates: start: 2012, end: 2013
  4. HUMIRA [Suspect]
     Dates: start: 20131114
  5. UNNAMED MEDICATION [Concomitant]
     Indication: HYPERTENSION
  6. UNNAMED MEDICATION [Concomitant]
     Indication: PAIN
  7. UNNAMED MEDICATION [Concomitant]
     Indication: THYROID DISORDER
  8. UNNAMED MEDICATION [Concomitant]
     Indication: MUSCLE SPASMS

REACTIONS (4)
  - Carpal tunnel syndrome [Recovered/Resolved]
  - Cholelithiasis [Recovered/Resolved]
  - Bronchitis [Recovered/Resolved]
  - Pharyngitis streptococcal [Recovered/Resolved]
